FAERS Safety Report 9969587 (Version 1)
Quarter: 2014Q1

REPORT INFORMATION
  Report Type: Spontaneous
  Country: US (occurrence: US)
  Receive Date: 20140306
  Receipt Date: 20140306
  Transmission Date: 20141002
  Serious: No
  Sender: FDA-Public Use
  Company Number: US-DRREDDYS-USA/USA/13/0027711

PATIENT
  Sex: 0

DRUGS (1)
  1. CLOPIDOGREL BISULFATE 75 MG [Suspect]
     Indication: PRODUCT USED FOR UNKNOWN INDICATION
     Route: 065
     Dates: start: 20121101

REACTIONS (3)
  - Headache [Unknown]
  - Drug ineffective [Unknown]
  - Product quality issue [Unknown]
